FAERS Safety Report 21372291 (Version 2)
Quarter: 2022Q4

REPORT INFORMATION
  Report Type: Report from Study
  Country: US (occurrence: US)
  Receive Date: 20220924
  Receipt Date: 20221218
  Transmission Date: 20230113
  Serious: No
  Sender: FDA-Public Use
  Company Number: US-NOVARTISTESTPH-NVSC2022US213609

PATIENT
  Sex: Female

DRUGS (1)
  1. KESIMPTA [Suspect]
     Active Substance: OFATUMUMAB
     Indication: Product used for unknown indication
     Route: 065

REACTIONS (6)
  - Pruritus [Recovering/Resolving]
  - Limb discomfort [Recovering/Resolving]
  - Gait disturbance [Recovering/Resolving]
  - Rash erythematous [Recovering/Resolving]
  - Urticaria [Recovering/Resolving]
  - Muscle twitching [Recovering/Resolving]
